FAERS Safety Report 14606796 (Version 1)
Quarter: 2018Q1

REPORT INFORMATION
  Report Type: Spontaneous
  Country: IT (occurrence: IT)
  Receive Date: 20180307
  Receipt Date: 20180307
  Transmission Date: 20180509
  Serious: Yes (Hospitalization)
  Sender: FDA-Public Use
  Company Number: IT-ACCORD-061437

PATIENT
  Age: 41 Year
  Sex: Female

DRUGS (3)
  1. DEPAKIN SANOFI S.P.A. [Suspect]
     Active Substance: VALPROATE SODIUM
     Indication: PERSONALITY DISORDER
     Route: 048
  2. LORAZEPAM. [Suspect]
     Active Substance: LORAZEPAM
     Indication: PERSONALITY DISORDER
     Route: 048
  3. QUETIAPINE. [Suspect]
     Active Substance: QUETIAPINE
     Indication: PERSONALITY DISORDER
     Route: 048

REACTIONS (3)
  - Drug abuse [Unknown]
  - Syncope [Recovered/Resolved]
  - Medication error [Unknown]

NARRATIVE: CASE EVENT DATE: 20170812
